FAERS Safety Report 8789375 (Version 1)
Quarter: 2012Q4

REPORT INFORMATION
  Report Type: Spontaneous
  Country: US (occurrence: None)
  Receive Date: 20120905
  Receipt Date: 20120905
  Transmission Date: 20130627
  Serious: Yes (Hospitalization)
  Sender: FDA-Public Use
  Company Number: DSU-2012-06890

PATIENT
  Age: 68 Year
  Sex: Female
  Weight: 68.04 kg

DRUGS (9)
  1. WELCHOL [Suspect]
     Indication: HYPERCHOLESTEROLEMIA
     Route: 048
     Dates: start: 201112, end: 20120113
  2. WELCHOL [Suspect]
     Indication: HYPERCHOLESTEROLEMIA
     Route: 048
     Dates: start: 20120627
  3. WELCHOL [Suspect]
     Indication: HYPERCHOLESTEROLEMIA
  4. CALCIUM [Concomitant]
  5. COUMADIN [Concomitant]
  6. ACIPHEX (RABEPRAZOLE SODIUM) (RABEPRAZOLE SODIUM) [Concomitant]
  7. VITAMINS [Concomitant]
  8. LEVOTHYROXINE (LEVOTHYROXINE) (LEVOTHYROXINE) [Concomitant]
  9. CHOLESTEROL MEDICINE [Concomitant]

REACTIONS (5)
  - Chest pain [None]
  - Dyspnoea [None]
  - Back pain [None]
  - Pain in extremity [None]
  - Gait disturbance [None]
